FAERS Safety Report 4764445-2 (Version None)
Quarter: 2005Q3

REPORT INFORMATION
  Report Type: 
  Country: None (occurrence: None)
  Receive Date: 20050906
  Receipt Date: 20050824
  Transmission Date: 20060218
  Serious: Yes (Other)
  Sender: FDA-Public Use
  Company Number: USA2005-0021106

PATIENT

DRUGS (1)
  1. MORPHINE SULFATE [Suspect]
     Indication: ACCIDENTAL EXPOSURE
     Dosage: SEE TEXT, TRANSPLACENTAL
     Route: 064

REACTIONS (10)
  - DEVELOPMENTAL DELAY [None]
  - DRUG EXPOSURE DURING PREGNANCY [None]
  - FOETAL DISTRESS SYNDROME [None]
  - FOETAL HEART RATE DECELERATION [None]
  - NEONATAL DISORDER [None]
  - PREMATURE BABY [None]
  - PREMATURE LABOUR [None]
  - ULTRASOUND DOPPLER ABNORMAL [None]
  - VASOCONSTRICTION [None]
  - VENTRICULAR HYPERTROPHY [None]
